FAERS Safety Report 8574877-2 (Version None)
Quarter: 2012Q3

REPORT INFORMATION
  Report Type: 
  Country: None (occurrence: None)
  Receive Date: 20120807
  Receipt Date: 20120725
  Transmission Date: 20120928
  Serious: Yes (Other)
  Sender: FDA-Public Use
  Company Number: US-ELI_LILLY_AND_COMPANY-US201207008898

PATIENT
  Sex: Male
  Weight: 149.21 kg

DRUGS (7)
  1. LANTUS [Concomitant]
  2. CORTISONE ACETATE [Concomitant]
     Indication: ADDISON'S DISEASE
     Dosage: UNK
  3. LYRICA [Concomitant]
     Indication: DIABETIC NEUROPATHY
     Dosage: UNK
  4. HUMALOG [Suspect]
     Indication: TYPE 1 DIABETES MELLITUS
     Dosage: UNK
     Dates: start: 20040101, end: 20070101
  5. SYMLIN [Concomitant]
     Indication: BLOOD GLUCOSE INCREASED
     Dosage: UNK
  6. HUMALOG [Suspect]
     Dosage: UNK
     Route: 058
     Dates: start: 20120713
  7. HUMULIN R [Suspect]
     Indication: TYPE 1 DIABETES MELLITUS
     Dosage: UNK
     Route: 058
     Dates: start: 20070101, end: 20120713

REACTIONS (8)
  - ADDISON'S DISEASE [None]
  - NEURALGIA [None]
  - OFF LABEL USE [None]
  - WEIGHT INCREASED [None]
  - DIABETIC NEUROPATHY [None]
  - BLOOD GLUCOSE INCREASED [None]
  - DRUG EFFECT DECREASED [None]
  - DIABETES MELLITUS [None]
